FAERS Safety Report 24440712 (Version 2)
Quarter: 2024Q4

REPORT INFORMATION
  Report Type: Report from Study
  Country: CH (occurrence: CH)
  Receive Date: 20241016
  Receipt Date: 20241017
  Transmission Date: 20250114
  Serious: No
  Sender: ROCHE
  Company Number: CH-ROCHE-3091903

PATIENT
  Age: 6 Year
  Sex: Male
  Weight: 26.0 kg

DRUGS (8)
  1. EMICIZUMAB [Suspect]
     Active Substance: EMICIZUMAB
     Indication: Haemophilia A without inhibitors
     Route: 058
     Dates: start: 20211217, end: 20220124
  2. EMICIZUMAB [Suspect]
     Active Substance: EMICIZUMAB
     Route: 058
     Dates: start: 20220131, end: 20221014
  3. EMICIZUMAB [Suspect]
     Active Substance: EMICIZUMAB
     Route: 058
     Dates: start: 20221021
  4. BETNESOL [Concomitant]
     Indication: Bronchitis
     Route: 048
     Dates: start: 20220924, end: 20220925
  5. VENTOLIN [Concomitant]
     Active Substance: ALBUTEROL SULFATE
     Indication: Bronchitis
     Route: 055
     Dates: start: 20220924, end: 20220925
  6. VENTOLIN [Concomitant]
     Active Substance: ALBUTEROL SULFATE
     Route: 055
     Dates: start: 20220926, end: 20220927
  7. ADRENALIN [Concomitant]
     Active Substance: EPINEPHRINE
     Indication: Bronchitis
     Route: 055
     Dates: start: 20220924, end: 20220924
  8. EBASTINE [Concomitant]
     Active Substance: EBASTINE
     Route: 048
     Dates: start: 20230529

REACTIONS (2)
  - Oral herpes [Recovered/Resolved]
  - Pyrexia [Recovered/Resolved]

NARRATIVE: CASE EVENT DATE: 20220331
